FAERS Safety Report 8460650 (Version 4)
Quarter: 2012Q4

REPORT INFORMATION
  Report Type: Report from Study
  Country: AR (occurrence: AR)
  Receive Date: 20120315
  Receipt Date: 20121105
  Transmission Date: 20130627
  Serious: Yes (Hospitalization)
  Sender: FDA-Public Use
  Company Number: AR-UCBSA-052967

PATIENT
  Age: 52 Year
  Sex: Male
  Weight: 98.5 kg

DRUGS (8)
  1. CERTOLIZUMAB PEGOL [Suspect]
     Indication: ANKYLOSING SPONDYLITIS
     Route: 058
     Dates: start: 20110317, end: 20120228
  2. CERTOLIZUMAB PEGOL [Suspect]
     Indication: ANKYLOSING SPONDYLITIS
     Route: 058
     Dates: start: 2012, end: 201203
  3. SULFASALAZINE [Concomitant]
     Indication: ANKYLOSING SPONDYLITIS
     Dates: start: 201008
  4. DICLOFENAC [Concomitant]
     Indication: ANKYLOSING SPONDYLITIS
     Dates: start: 201008
  5. CLONAZEPAM [Concomitant]
     Indication: ANXIETY
     Dosage: 1 MG
     Dates: start: 20120307, end: 201203
  6. RANITIDINE [Concomitant]
     Indication: PROPHYLAXIS
     Dosage: 1 AMPULLE
     Route: 042
     Dates: start: 20120307, end: 201203
  7. RANITIDINE [Concomitant]
     Indication: PROPHYLAXIS
     Dates: start: 201203, end: 201203
  8. METOCLOPRAMIDE [Concomitant]
     Indication: PROPHYLAXIS
     Dosage: 1 AMPULLE
     Route: 042
     Dates: start: 20120307, end: 201203

REACTIONS (1)
  - Pulmonary tuberculosis [Recovering/Resolving]
